FAERS Safety Report 8220705-4 (Version None)
Quarter: 2012Q1

REPORT INFORMATION
  Report Type: 
  Country: None (occurrence: None)
  Receive Date: 20120320
  Receipt Date: 20120309
  Transmission Date: 20120608
  Serious: Yes (Hospitalization, Other)
  Sender: FDA-Public Use
  Company Number: US-SANOFI-AVENTIS-2012SA016311

PATIENT
  Sex: Female

DRUGS (10)
  1. METOPROLOL SUCCINATE [Concomitant]
  2. MULTAQ [Suspect]
     Indication: ATRIAL FIBRILLATION
     Route: 048
  3. AMLODIPINE [Concomitant]
  4. GLIMEPIRIDE [Concomitant]
  5. METFORMIN HCL [Concomitant]
  6. POTASSIUM [Concomitant]
  7. LANTUS [Concomitant]
     Dosage: DOSE:23 UNIT(S)
  8. LASIX [Concomitant]
     Indication: SWELLING
  9. HYDROCHLOROTHIAZIDE [Concomitant]
     Indication: SWELLING
  10. ANTIHYPERTENSIVES [Concomitant]

REACTIONS (2)
  - ATRIAL FIBRILLATION [None]
  - PNEUMONIA [None]
